FAERS Safety Report 4636942-1 (Version None)
Quarter: 2005Q2

REPORT INFORMATION
  Report Type: 
  Country: None (occurrence: None)
  Receive Date: 20050415
  Receipt Date: 20050406
  Transmission Date: 20051028
  Serious: Yes (Hospitalization)
  Sender: FDA-Public Use
  Company Number: FR-MERCK-0504FRA00028

PATIENT
  Age: 52 Year
  Sex: Male

DRUGS (6)
  1. CANCIDAS [Suspect]
     Indication: INFECTION PROPHYLAXIS
     Route: 042
     Dates: start: 20050110, end: 20050121
  2. CYTARABINE [Suspect]
     Indication: ACUTE MYELOID LEUKAEMIA
     Route: 042
     Dates: start: 20041217, end: 20041220
  3. DANAZOL [Suspect]
     Route: 048
     Dates: start: 20041007, end: 20041206
  4. IDARUBICIN HYDROCHLORIDE [Suspect]
     Indication: ACUTE MYELOID LEUKAEMIA
     Route: 048
     Dates: start: 20041216, end: 20041218
  5. CEFEPIME HYDROCHLORIDE [Suspect]
     Indication: INFECTION PROPHYLAXIS
     Route: 042
     Dates: start: 20041216, end: 20050108
  6. AMIKACIN SULFATE [Suspect]
     Indication: INFECTION PROPHYLAXIS
     Route: 042
     Dates: start: 20041216, end: 20050103

REACTIONS (4)
  - ALANINE AMINOTRANSFERASE INCREASED [None]
  - ASPARTATE AMINOTRANSFERASE INCREASED [None]
  - BLOOD BILIRUBIN INCREASED [None]
  - GAMMA-GLUTAMYLTRANSFERASE INCREASED [None]
